FAERS Safety Report 11271238 (Version 3)
Quarter: 2015Q3

REPORT INFORMATION
  Report Type: Report from Study
  Country: US (occurrence: US)
  Receive Date: 20150714
  Receipt Date: 20150727
  Transmission Date: 20151125
  Serious: Yes (Other)
  Sender: FDA-Public Use
  Company Number: US-ABBVIE-15P-163-1423383-00

PATIENT
  Age: 60 Year
  Sex: Male
  Weight: 97.16 kg

DRUGS (2)
  1. VIEKIRA PAK [Suspect]
     Active Substance: DASABUVIR\OMBITASVIR\PARITAPREVIR\RITONAVIR
     Indication: HEPATITIS C
     Dosage: PER PACKAGE DIRECTIONS IN AM AND IN PM
     Route: 048
  2. RIBASPHERE RIBAPAK [Concomitant]
     Active Substance: RIBAVIRIN
     Indication: HEPATITIS C

REACTIONS (10)
  - Loss of consciousness [Unknown]
  - Anaemia [Unknown]
  - Seizure [Unknown]
  - Pruritus [Unknown]
  - Fatigue [Unknown]
  - Insomnia [Unknown]
  - Urinary incontinence [Unknown]
  - Oedema peripheral [Unknown]
  - Peripheral swelling [Unknown]
  - Hypotension [Unknown]

NARRATIVE: CASE EVENT DATE: 201506
